FAERS Safety Report 8308274-1 (Version None)
Quarter: 2012Q2

REPORT INFORMATION
  Report Type: 
  Country: None (occurrence: None)
  Receive Date: 20120424
  Receipt Date: 20120411
  Transmission Date: 20120825
  Serious: Yes (Other)
  Sender: FDA-Public Use
  Company Number: US-ROCHE-1059487

PATIENT
  Sex: Female
  Weight: 74.91 kg

DRUGS (7)
  1. COMBIVENT [Concomitant]
  2. XYZAL [Concomitant]
  3. SINGULAIR [Concomitant]
  4. PROVENTIL [Concomitant]
  5. OMALIZUMAB [Suspect]
     Indication: ASTHMA
     Dosage: 3 INJECTIONS
     Route: 058
     Dates: start: 20110301
  6. ADVAIR DISKUS 100/50 [Concomitant]
  7. PREDNISONE TAB [Concomitant]

REACTIONS (3)
  - PRURITUS [None]
  - RASH [None]
  - DYSPNOEA [None]
